FAERS Safety Report 7341779-9 (Version None)
Quarter: 2011Q1

REPORT INFORMATION
  Report Type: 
  Country: None (occurrence: None)
  Receive Date: 20110309
  Receipt Date: 20110304
  Transmission Date: 20110831
  Serious: Yes (Hospitalization, Other)
  Sender: FDA-Public Use
  Company Number: US-PFIZER INC-2010182430

PATIENT
  Sex: Male

DRUGS (1)
  1. CHANTIX [Suspect]
     Indication: SMOKING CESSATION THERAPY
     Dosage: STARTER PACK
     Dates: start: 20070701, end: 20070901

REACTIONS (7)
  - POST-TRAUMATIC STRESS DISORDER [None]
  - ANXIETY DISORDER [None]
  - SUICIDE ATTEMPT [None]
  - BIPOLAR DISORDER [None]
  - INTENTIONAL OVERDOSE [None]
  - DEPRESSION [None]
  - MOOD SWINGS [None]
